FAERS Safety Report 7030413-3 (Version None)
Quarter: 2010Q4

REPORT INFORMATION
  Report Type: 
  Country: None (occurrence: None)
  Receive Date: 20101006
  Receipt Date: 20100922
  Transmission Date: 20110411
  Serious: Yes (Other)
  Sender: FDA-Public Use
  Company Number: PHHY2010AT35575

PATIENT
  Age: 69 Year
  Sex: Female
  Weight: 70 kg

DRUGS (2)
  1. TASIGNA [Suspect]
     Indication: CHRONIC MYELOID LEUKAEMIA
     Dosage: 800 MG DAILY
     Route: 048
     Dates: start: 20070201
  2. ACETYLSALICYLIC ACID SRT [Concomitant]

REACTIONS (4)
  - DIABETES MELLITUS [None]
  - LIPASE INCREASED [None]
  - PERIPHERAL ARTERIAL OCCLUSIVE DISEASE [None]
  - WEIGHT DECREASED [None]
